FAERS Safety Report 21897778 (Version 1)
Quarter: 2023Q1

REPORT INFORMATION
  Report Type: Spontaneous
  Country: US (occurrence: US)
  Receive Date: 20230123
  Receipt Date: 20230123
  Transmission Date: 20230418
  Serious: No
  Sender: FDA-Public Use
  Company Number: US-BIOVITRUM-2023US01072

PATIENT
  Sex: Female
  Weight: 11 kg

DRUGS (16)
  1. SYNAGIS [Suspect]
     Active Substance: PALIVIZUMAB
     Indication: Lung disorder
     Dates: start: 20211006
  2. OMEPRAZOLE [Concomitant]
     Active Substance: OMEPRAZOLE
     Dosage: 100 PERCENT POWDER
  3. LACTULOSE [Concomitant]
     Active Substance: LACTULOSE
     Dosage: 10 G/15 ML SOLUTION
  4. KATERZIA 1 MG/ML ORAL SUSP [Concomitant]
     Dosage: 1 MG/ML ORAL SUSP
  5. KEPPRA [Concomitant]
     Active Substance: LEVETIRACETAM
     Dosage: 100 MG/ML SOLUTION
  6. PHENOBARBITAL 20 MG/5 ML ELIXIR [Concomitant]
     Dosage: 20 MG/5 ML
  7. GLYCOPYRROLATE 1 MG/5 ML SOLUTION [Concomitant]
     Dosage: 1 MG/5 ML SOLUTION
  8. PROPRANOLOL HCL 20 MG/5 ML SOLUTION [Concomitant]
     Dosage: 20 MG/5 ML SOLUTION
  9. LASIX 20 MG TABLET [Concomitant]
  10. MULTIVITAMINS WITH IRON TABLET [Concomitant]
  11. CLONIDINE HCL POWDER [Concomitant]
  12. SYNAGIS [Suspect]
     Active Substance: PALIVIZUMAB
     Indication: Premature baby
  13. SYNAGIS [Suspect]
     Active Substance: PALIVIZUMAB
     Indication: Heart disease congenital
  14. SYNAGIS [Suspect]
     Active Substance: PALIVIZUMAB
     Indication: Short stature
  15. SYNAGIS [Suspect]
     Active Substance: PALIVIZUMAB
     Indication: Low birth weight baby
  16. SYNAGIS [Suspect]
     Active Substance: PALIVIZUMAB
     Indication: Oxygen therapy

REACTIONS (2)
  - Nasopharyngitis [Unknown]
  - Product dose omission issue [Unknown]
